FAERS Safety Report 7481015-6 (Version None)
Quarter: 2011Q2

REPORT INFORMATION
  Report Type: 
  Country: None (occurrence: None)
  Receive Date: 20110504
  Receipt Date: 20110421
  Transmission Date: 20111010
  Serious: Yes (Hospitalization)
  Sender: FDA-Public Use
  Company Number: 2010SP052116

PATIENT
  Age: 55 Year
  Sex: Female

DRUGS (6)
  1. CLONAZEPAM [Concomitant]
  2. INTRON A [Suspect]
     Indication: HEPATITIS C
     Dosage: SC; SC
     Route: 058
     Dates: start: 20100816, end: 20100914
  3. INTRON A [Suspect]
     Indication: HEPATITIS C
     Dosage: SC; SC
     Route: 058
     Dates: start: 20100915
  4. REBETOL [Suspect]
     Indication: HEPATITIS C
     Dosage: 1000 MG; PO
     Route: 048
     Dates: start: 20100816
  5. TRAZODONE HCL [Concomitant]
  6. LAMICTAL [Concomitant]

REACTIONS (4)
  - SYNCOPE [None]
  - DIZZINESS [None]
  - BALANCE DISORDER [None]
  - ASTHENIA [None]
